FAERS Safety Report 7607326-9 (Version None)
Quarter: 2011Q3

REPORT INFORMATION
  Report Type: 
  Country: None (occurrence: None)
  Receive Date: 20110713
  Receipt Date: 20110711
  Transmission Date: 20111222
  Serious: Yes (Life-Threatening, Hospitalization)
  Sender: FDA-Public Use
  Company Number: US-AMGEN-USACT2011027197

PATIENT
  Age: 59 Year
  Sex: Female

DRUGS (18)
  1. HYDROCODONE [Concomitant]
  2. METOPROLOL SUCCINATE [Concomitant]
  3. RABEPRAZOLE SODIUM [Concomitant]
  4. TAZAROTENE [Concomitant]
  5. ALPRAZOLAM [Concomitant]
  6. DOXYCYCLINE [Concomitant]
  7. ONDANSETRON [Concomitant]
  8. PEGFILGRASTIM [Suspect]
     Indication: BREAST CANCER
     Dosage: UNK
     Dates: start: 20110203, end: 20110318
  9. WARFARIN SODIUM [Concomitant]
  10. CEPHALEXIN [Concomitant]
  11. BEVACIZUMAB [Concomitant]
     Indication: BREAST CANCER
     Dosage: UNK UNK, BLINDED
     Route: 065
     Dates: start: 20110203, end: 20110217
  12. PACLITAXEL [Concomitant]
     Indication: BREAST CANCER
     Dosage: 80 MG/M2, UNK
     Dates: start: 20110412
  13. DOXORUBICIN HCL [Concomitant]
     Indication: BREAST CANCER
     Dosage: 60 MG/M2, UNK
     Dates: start: 20110203, end: 20110317
  14. APREPITANT [Concomitant]
  15. METRONIDAZOLE [Concomitant]
  16. ENOXAPARIN [Concomitant]
  17. CYCLOPHOSPHAMIDE [Concomitant]
     Indication: BREAST CANCER
     Dosage: 600 MG/M2, UNK
     Route: 042
     Dates: start: 20110203, end: 20110317
  18. DEXAMETHASONE [Concomitant]

REACTIONS (2)
  - PNEUMONITIS [None]
  - ACUTE RESPIRATORY DISTRESS SYNDROME [None]
